FAERS Safety Report 8599099-0 (Version None)
Quarter: 2012Q3

REPORT INFORMATION
  Report Type: 
  Country: None (occurrence: None)
  Receive Date: 20120803
  Receipt Date: 20120723
  Transmission Date: 20120928
  Serious: Yes (Hospitalization)
  Sender: FDA-Public Use
  Company Number: UTC-021065

PATIENT
  Age: 67 Year
  Sex: Male
  Weight: 86.36 kg

DRUGS (5)
  1. REMODULIN [Suspect]
     Indication: PULMONARY HYPERTENSION
     Dosage: 2.88 UG/KG (0.002 UG/KG, 1 IN 1 MIN), SUBCUTANEOUS
     Route: 058
     Dates: start: 20120710
  2. REMODULIN [Suspect]
     Indication: COR PULMONALE CHRONIC
     Dosage: 2.88 UG/KG (0.002 UG/KG, 1 IN 1 MIN), SUBCUTANEOUS
     Route: 058
     Dates: start: 20120710
  3. REMODULIN [Suspect]
     Indication: PULMONARY HYPERTENSION
     Dosage: 2.88 UG/KG (0.002 UG/KG, 1 IN 1 MIN), SUBCUTANEOUS
     Route: 058
     Dates: start: 20120628
  4. REMODULIN [Suspect]
     Indication: COR PULMONALE CHRONIC
     Dosage: 2.88 UG/KG (0.002 UG/KG, 1 IN 1 MIN), SUBCUTANEOUS
     Route: 058
     Dates: start: 20120628
  5. ADCIRCA [Concomitant]

REACTIONS (2)
  - SWELLING [None]
  - RESPIRATORY DISORDER [None]
